FAERS Safety Report 18419781 (Version 1)
Quarter: 2020Q4

REPORT INFORMATION
  Report Type: Spontaneous
  Country: US (occurrence: US)
  Receive Date: 20201023
  Receipt Date: 20201023
  Transmission Date: 20210114
  Serious: No
  Sender: FDA-Public Use
  Company Number: US-TEVA-2020-US-1840546

PATIENT
  Sex: Female

DRUGS (1)
  1. LORAZEPAM WATSON [Suspect]
     Active Substance: LORAZEPAM
     Indication: ANXIETY
     Route: 065

REACTIONS (3)
  - Therapeutic product effect decreased [Unknown]
  - Product shape issue [Unknown]
  - Product substitution issue [Unknown]

NARRATIVE: CASE EVENT DATE: 202009
